FAERS Safety Report 12367024 (Version 1)
Quarter: 2016Q2

REPORT INFORMATION
  Report Type: Report from Study
  Country: US (occurrence: US)
  Receive Date: 20160513
  Receipt Date: 20160513
  Transmission Date: 20160815
  Serious: Yes (Hospitalization)
  Sender: FDA-Public Use
  Company Number: US-AMGEN-USACT2016058139

PATIENT
  Sex: Male
  Weight: 88.18 kg

DRUGS (3)
  1. DEXAMETHASONE. [Suspect]
     Active Substance: DEXAMETHASONE
     Indication: PLASMA CELL MYELOMA
     Dosage: 60 MG, PER CHEMO REGIM
     Route: 065
     Dates: start: 20160419
  2. LENALIDOMIDE [Suspect]
     Active Substance: LENALIDOMIDE
     Indication: PLASMA CELL MYELOMA
     Dosage: 200 MG, PER CHEMO REGIM
     Route: 065
     Dates: start: 20160419
  3. CARFILZOMIB [Suspect]
     Active Substance: CARFILZOMIB
     Indication: PLASMA CELL MYELOMA
     Dosage: 142 MG, PER CHEMO REGIM
     Route: 042
     Dates: start: 20160419

REACTIONS (3)
  - Hypotension [Recovering/Resolving]
  - Atrial fibrillation [Recovering/Resolving]
  - Lung infection [Recovering/Resolving]

NARRATIVE: CASE EVENT DATE: 20160426
